FAERS Safety Report 7880508-7 (Version None)
Quarter: 2011Q4

REPORT INFORMATION
  Report Type: 
  Country: None (occurrence: None)
  Receive Date: 20111101
  Receipt Date: 20111027
  Transmission Date: 20120403
  Serious: Yes (Other)
  Sender: FDA-Public Use
  Company Number: PHHY2011BR55281

PATIENT
  Age: 33 Year
  Sex: Female

DRUGS (1)
  1. RITALIN [Suspect]
     Indication: PSYCHOMOTOR HYPERACTIVITY
     Dosage: 10 MG, UNK
     Route: 048
     Dates: start: 20050101

REACTIONS (5)
  - FEAR [None]
  - ACCIDENT [None]
  - SOMNOLENCE [None]
  - DEPRESSED MOOD [None]
  - SUICIDAL BEHAVIOUR [None]
